FAERS Safety Report 14496008 (Version 1)
Quarter: 2018Q1

REPORT INFORMATION
  Report Type: Spontaneous
  Country: US (occurrence: US)
  Receive Date: 20180207
  Receipt Date: 20180207
  Transmission Date: 20180509
  Serious: Yes (Hospitalization, Other)
  Sender: FDA-Public Use
  Company Number: US-ZYDUS-018977

PATIENT
  Age: 75 Year
  Sex: Male

DRUGS (4)
  1. TELMISARTAN. [Interacting]
     Active Substance: TELMISARTAN
     Indication: PRODUCT USED FOR UNKNOWN INDICATION
     Route: 065
  2. PRAVASTATIN. [Suspect]
     Active Substance: PRAVASTATIN
     Indication: PRODUCT USED FOR UNKNOWN INDICATION
     Route: 065
  3. KETAMINE/GABAPENTIN/IMIPRAMINE/LIDOCAINE/MEFENAMIC ACID/CLONIDINE [Interacting]
     Active Substance: CLONIDINE\GABAPENTIN\IMIPRAMINE\KETAMINE\LIDOCAINE\MEFENAMIC ACID
     Indication: ANALGESIC THERAPY
     Route: 067
  4. CODEINE/PARACETAMOL [Interacting]
     Active Substance: ACETAMINOPHEN\CODEINE PHOSPHATE
     Indication: ANALGESIC THERAPY
     Route: 065

REACTIONS (16)
  - Encephalopathy [Recovered/Resolved]
  - Perseveration [Recovered/Resolved]
  - Judgement impaired [Recovered/Resolved]
  - Hostility [Recovered/Resolved]
  - Drug interaction [Unknown]
  - Confusional state [Recovered/Resolved]
  - Tangentiality [Recovered/Resolved]
  - Aggression [Recovered/Resolved]
  - Delirium [Recovered/Resolved]
  - Mental disorder [Recovered/Resolved]
  - Paranoia [Recovered/Resolved]
  - Insomnia [Recovered/Resolved]
  - Flat affect [Recovered/Resolved]
  - Abnormal behaviour [Recovered/Resolved]
  - Anger [Recovered/Resolved]
  - Disorientation [Recovered/Resolved]
